FAERS Safety Report 13570015 (Version 3)
Quarter: 2017Q2

REPORT INFORMATION
  Report Type: Spontaneous
  Country: US (occurrence: US)
  Receive Date: 20170522
  Receipt Date: 20170526
  Transmission Date: 20170830
  Serious: Yes (Hospitalization)
  Sender: FDA-Public Use
  Company Number: US-ACTELION-A-NJ2017-154205

PATIENT
  Age: 47 Year
  Sex: Female
  Weight: 79.82 kg

DRUGS (1)
  1. VELETRI [Suspect]
     Active Substance: EPOPROSTENOL
     Indication: PULMONARY HYPERTENSION
     Dosage: 29 NG/KG, PER MIN
     Route: 042

REACTIONS (5)
  - Hypervolaemia [Unknown]
  - Condition aggravated [Unknown]
  - Systemic scleroderma [Unknown]
  - Hypotension [Unknown]
  - Musculoskeletal pain [Unknown]
